FAERS Safety Report 4446448-0 (Version None)
Quarter: 2004Q3

REPORT INFORMATION
  Report Type: 
  Country: None (occurrence: None)
  Receive Date: 20040907
  Receipt Date: 20040824
  Transmission Date: 20050211
  Serious: Yes (Hospitalization)
  Sender: FDA-Public Use
  Company Number: 2004059437

PATIENT
  Age: 45 Year
  Sex: Male

DRUGS (6)
  1. GLUCOTROL XL [Suspect]
     Indication: ILL-DEFINED DISORDER
     Dosage: 10 MG (5 MG, 2 IN 1 D), ORAL
     Route: 048
     Dates: start: 20040801
  2. FLUOXETINE HYDROCHLORIDE [Concomitant]
  3. LITHIUM CARBONATE [Concomitant]
  4. GABAPENTIN [Concomitant]
  5. FENOFIBRATE [Concomitant]
  6. VALDECOXIB [Concomitant]

REACTIONS (3)
  - BLOOD GLUCOSE DECREASED [None]
  - FATIGUE [None]
  - FEELING ABNORMAL [None]
